FAERS Safety Report 6016854-1 (Version None)
Quarter: 2008Q4

REPORT INFORMATION
  Report Type: 
  Country: None (occurrence: None)
  Receive Date: 20081219
  Receipt Date: 20081210
  Transmission Date: 20090506
  Serious: Yes (Hospitalization)
  Sender: FDA-Public Use
  Company Number: TCI2008A06107

PATIENT
  Age: 33 Year
  Sex: Male

DRUGS (4)
  1. ACTOS [Suspect]
     Indication: DIABETES MELLITUS
     Dosage: 15 MG (15 MG, 1 IN 1 D)
     Route: 048
     Dates: start: 20081117, end: 20081202
  2. NOVORAPID (INSULIN ASPART) [Concomitant]
  3. FAMOTIDINE [Concomitant]
  4. NATEGLINIDE [Concomitant]

REACTIONS (3)
  - DEHYDRATION [None]
  - RHABDOMYOLYSIS [None]
  - WHITE BLOOD CELL COUNT INCREASED [None]
